FAERS Safety Report 17351524 (Version 2)
Quarter: 2020Q1

REPORT INFORMATION
  Report Type: Spontaneous
  Country: DK (occurrence: DK)
  Receive Date: 20200130
  Receipt Date: 20200206
  Transmission Date: 20200409
  Serious: Yes (Other)
  Sender: FDA-Public Use
  Company Number: DK-PFIZER INC-2020036368

PATIENT
  Sex: Male

DRUGS (2)
  1. NINTEDANIB [Concomitant]
     Active Substance: NINTEDANIB
     Indication: NEOPLASM PROGRESSION
     Dosage: UNK
     Dates: start: 201608
  2. DOCETAXEL. [Suspect]
     Active Substance: DOCETAXEL
     Indication: NON-SMALL CELL LUNG CANCER STAGE IV
     Dates: start: 201608, end: 201612

REACTIONS (1)
  - Toxicity to various agents [Recovered/Resolved]
